FAERS Safety Report 7415704-6 (Version None)
Quarter: 2011Q2

REPORT INFORMATION
  Report Type: 
  Country: None (occurrence: None)
  Receive Date: 20110414
  Receipt Date: 20110409
  Transmission Date: 20111010
  Serious: Yes (Other)
  Sender: FDA-Public Use
  Company Number: US-BRISTOL-MYERS SQUIBB COMPANY-15665599

PATIENT
  Age: 58 Year
  Sex: Male
  Weight: 102 kg

DRUGS (1)
  1. IPILIMUMAB [Suspect]
     Indication: MALIGNANT MELANOMA
     Dosage: CYCLE 21DAYS 10MG/KG IV OVER 90MIN ON DAY 1 Q12 WEEKS COURSES:2TOTAL LAST DOSE:11MAR2011
     Route: 042
     Dates: start: 20110218, end: 20110311

REACTIONS (1)
  - LIPASE INCREASED [None]
